FAERS Safety Report 21990111 (Version 3)
Quarter: 2023Q2

REPORT INFORMATION
  Report Type: Spontaneous
  Country: IN (occurrence: IN)
  Receive Date: 20230214
  Receipt Date: 20230427
  Transmission Date: 20230722
  Serious: Yes (Other)
  Sender: FDA-Public Use
  Company Number: IN-PFIZER INC-PV202300027010

PATIENT
  Age: 71 Year
  Sex: Female
  Weight: 52 kg

DRUGS (5)
  1. PALBOCICLIB [Suspect]
     Active Substance: PALBOCICLIB
     Indication: Breast cancer metastatic
     Dosage: ONCE DAILY (0-0-1), FOR 21 DAYS
     Route: 048
  2. PALBOCICLIB [Suspect]
     Active Substance: PALBOCICLIB
     Dosage: 75 MG ONCE DAILY (X-X-1) X 21 DAYS, 1 WK OFF
     Route: 048
  3. LETROZOLE [Concomitant]
     Active Substance: LETROZOLE
     Dosage: 25 MG, 1X/DAY (0-0-1)
     Route: 048
  4. OSTEOFIT C PLUS [Concomitant]
     Dosage: UNK, 1X/DAY (0-0-1)
     Route: 048
  5. MUCOBENZ [Concomitant]
     Dosage: UNK

REACTIONS (6)
  - Ascites [Unknown]
  - Abdominal distension [Unknown]
  - Oral pain [Unknown]
  - White blood cell count decreased [Unknown]
  - Oedema peripheral [Unknown]
  - Heart rate increased [Unknown]
